FAERS Safety Report 24202415 (Version 2)
Quarter: 2024Q3

REPORT INFORMATION
  Report Type: Report from Study
  Country: US (occurrence: None)
  Receive Date: 20240813
  Receipt Date: 20240816
  Transmission Date: 20241016
  Serious: Yes (Death, Other)
  Sender: ASTRAZENECA
  Company Number: 2024A180970

PATIENT
  Age: 18857 Day
  Sex: Male

DRUGS (1)
  1. LYNPARZA [Suspect]
     Active Substance: OLAPARIB
     Route: 048

REACTIONS (27)
  - Death [Fatal]
  - General physical health deterioration [Unknown]
  - Malignant neoplasm of thorax [Unknown]
  - BRCA2 gene mutation [Unknown]
  - Tumour invasion [Unknown]
  - Pulmonary embolism [Unknown]
  - Deep vein thrombosis [Unknown]
  - Pleural effusion [Unknown]
  - Pancreatic carcinoma [Unknown]
  - Respiratory failure [Unknown]
  - Type V hyperlipidaemia [Unknown]
  - Chronic obstructive pulmonary disease [Unknown]
  - Obstructive airways disorder [Unknown]
  - Decreased appetite [Unknown]
  - Cough [Unknown]
  - Chronic obstructive pulmonary disease [Unknown]
  - Diarrhoea [Unknown]
  - Insomnia [Unknown]
  - Renal disorder [Unknown]
  - Prostatomegaly [Unknown]
  - Anaemia [Unknown]
  - Proteinuria [Unknown]
  - Hypoglycaemia [Unknown]
  - Tachycardia [Unknown]
  - Depression [Unknown]
  - Diabetes mellitus [Unknown]
  - Dyspnoea [Unknown]

NARRATIVE: CASE EVENT DATE: 20001020
